FAERS Safety Report 4941107-X (Version None)
Quarter: 2006Q1

REPORT INFORMATION
  Report Type: 
  Country: None (occurrence: None)
  Receive Date: 20060313
  Receipt Date: 20060306
  Transmission Date: 20060701
  Serious: Yes (Life-Threatening, Hospitalization)
  Sender: FDA-Public Use
  Company Number: 2006AC00394

PATIENT
  Age: 7 Year
  Sex: Male
  Weight: 13 kg

DRUGS (12)
  1. LIDOCAINE [Suspect]
     Indication: GENERAL ANAESTHESIA
  2. PHENYTOIN [Suspect]
     Indication: CONVULSION
     Dosage: TAKEN FOR AT LEAST ONE YEAR
  3. AMLODIPINE [Suspect]
     Indication: HYPERTENSION
     Dosage: TAKEN FOR AT LEAST ONE YEAR
  4. NIFEDIPINE [Suspect]
     Indication: HYPERTENSION
     Dosage: TAKEN FOR AT LEAST ONE YEAR
  5. LABETALOL [Suspect]
     Indication: HYPERTENSION
     Dosage: TAKEN FOR AT LEAST ONE YEAR
  6. MIDAZOLAM [Suspect]
     Indication: GENERAL ANAESTHESIA
  7. ATRACURIUM [Suspect]
     Indication: GENERAL ANAESTHESIA
  8. ISOFLURANE [Suspect]
     Indication: MAINTENANCE OF ANAESTHESIA
  9. CAPOTEN [Suspect]
     Indication: HYPERTENSION
  10. CARBAMAZEPINE [Suspect]
     Indication: CONVULSION
  11. KETAMINE HCL [Concomitant]
     Dosage: GIVEN IN OPERATING ROOM.
     Route: 042
  12. ATROPINE [Concomitant]
     Dosage: GIVEN IN OPERATING ROOM.
     Route: 042

REACTIONS (10)
  - ASTHENIA [None]
  - BLINDNESS CORTICAL [None]
  - BLOOD PRESSURE DECREASED [None]
  - BLOOD PRESSURE INCREASED [None]
  - BRADYCARDIA [None]
  - CARDIAC ARREST [None]
  - GAIT DISTURBANCE [None]
  - HEART RATE INCREASED [None]
  - LETHARGY [None]
  - METABOLIC ACIDOSIS [None]
